FAERS Safety Report 19154144 (Version 1)
Quarter: 2021Q2

REPORT INFORMATION
  Report Type: Spontaneous
  Country: TW (occurrence: TW)
  Receive Date: 20210419
  Receipt Date: 20210419
  Transmission Date: 20210717
  Serious: Yes (Other)
  Sender: FDA-Public Use
  Company Number: TW-ASTRAZENECA-2021A325234

PATIENT
  Age: 59 Year
  Sex: Female

DRUGS (3)
  1. PALBOCICLIB [Suspect]
     Active Substance: PALBOCICLIB
     Route: 048
     Dates: start: 20191218
  2. LETROZOLE. [Concomitant]
     Active Substance: LETROZOLE
     Dates: start: 201807
  3. FASLODEX [Suspect]
     Active Substance: FULVESTRANT
     Indication: BREAST CANCER STAGE III
     Route: 030
     Dates: start: 20191218

REACTIONS (6)
  - Metastases to bone [Unknown]
  - Hepatic enzyme abnormal [Unknown]
  - Malignant neoplasm progression [Unknown]
  - Ascites [Unknown]
  - Pseudocirrhosis [Unknown]
  - Abdominal pain upper [Unknown]

NARRATIVE: CASE EVENT DATE: 202005
